FAERS Safety Report 9536069 (Version 1)
Quarter: 2013Q3

REPORT INFORMATION
  Report Type: Spontaneous
  Country: US (occurrence: US)
  Receive Date: 20130919
  Receipt Date: 20130919
  Transmission Date: 20140515
  Serious: No
  Sender: FDA-Public Use
  Company Number: US-BAYER-2013-113026

PATIENT
  Sex: Female
  Weight: 58.96 kg

DRUGS (2)
  1. BETASERON [Suspect]
     Dosage: 0.25 MG, QOD
     Route: 058
     Dates: start: 1994
  2. ATIVAN [Concomitant]

REACTIONS (2)
  - Injection site bruising [Unknown]
  - Injection site scar [Unknown]
